FAERS Safety Report 8462497-X (Version None)
Quarter: 2012Q2

REPORT INFORMATION
  Report Type: 
  Country: None (occurrence: None)
  Receive Date: 20120620
  Receipt Date: 20120426
  Transmission Date: 20120825
  Serious: Yes (Death)
  Sender: FDA-Public Use
  Company Number: 3087-2012-00003

PATIENT
  Age: 45 Year
  Sex: Male
  Weight: 83.0083 kg

DRUGS (2)
  1. SODIUM CITRATE [Suspect]
     Indication: APHERESIS
     Dosage: 1 BAG PER PROCEDURE/IV
     Route: 042
     Dates: start: 20120406
  2. PCS2 - HAEMONETICS [Concomitant]

REACTIONS (2)
  - ABDOMINAL PAIN UPPER [None]
  - POST PROCEDURAL COMPLICATION [None]
